FAERS Safety Report 7940372-4 (Version None)
Quarter: 2011Q4

REPORT INFORMATION
  Report Type: 
  Country: None (occurrence: None)
  Receive Date: 20111127
  Receipt Date: 20111115
  Transmission Date: 20120403
  Serious: Yes (Death, Other)
  Sender: FDA-Public Use
  Company Number: US-ELI_LILLY_AND_COMPANY-US201108005237

PATIENT
  Sex: Male

DRUGS (1)
  1. FORTEO [Suspect]
     Indication: OSTEOPOROSIS
     Dosage: UNK
     Dates: end: 20110701

REACTIONS (5)
  - KNEE ARTHROPLASTY [None]
  - AMNESIA [None]
  - DIARRHOEA [None]
  - DEMENTIA ALZHEIMER'S TYPE [None]
  - DEATH [None]
